FAERS Safety Report 4908758-X (Version None)
Quarter: 2006Q1

REPORT INFORMATION
  Report Type: 
  Country: None (occurrence: None)
  Receive Date: 20060210
  Receipt Date: 20051111
  Transmission Date: 20060701
  Serious: No
  Sender: FDA-Public Use
  Company Number: US-GLAXOSMITHKLINE-A0581961A

PATIENT
  Age: 51 Year
  Sex: Female

DRUGS (3)
  1. PAXIL CR [Suspect]
     Indication: ANXIETY
     Dosage: 37.5MG PER DAY
     Route: 048
     Dates: start: 20040101
  2. PEPCID [Concomitant]
  3. LOPRESSOR [Concomitant]

REACTIONS (4)
  - ARRHYTHMIA [None]
  - BLOOD PRESSURE FLUCTUATION [None]
  - CARDIAC MURMUR [None]
  - PALPITATIONS [None]
